FAERS Safety Report 7828649-4 (Version None)
Quarter: 2011Q4

REPORT INFORMATION
  Report Type: 
  Country: None (occurrence: None)
  Receive Date: 20111020
  Receipt Date: 20111012
  Transmission Date: 20120403
  Serious: Yes (Other)
  Sender: FDA-Public Use
  Company Number: US-BAYER-2011-034979

PATIENT
  Sex: Female

DRUGS (1)
  1. MIRENA [Suspect]
     Indication: CONTRACEPTION
     Dosage: 20 ?G, CONT
     Route: 015
     Dates: start: 20100922

REACTIONS (9)
  - VAGINAL HAEMORRHAGE [None]
  - BACK PAIN [None]
  - BREAST TENDERNESS [None]
  - HEADACHE [None]
  - VAGINAL DISCHARGE [None]
  - PELVIC PAIN [None]
  - MUSCLE SPASMS [None]
  - WEIGHT INCREASED [None]
  - MIGRAINE [None]
